FAERS Safety Report 16383031 (Version 1)
Quarter: 2019Q2

REPORT INFORMATION
  Report Type: Spontaneous
  Country: US (occurrence: US)
  Receive Date: 20190508
  Receipt Date: 20190508
  Transmission Date: 20190711
  Serious: Yes (Other)
  Sender: FDA-Public Use
  Company Number: None

PATIENT
  Age: 46 Year
  Sex: Female
  Weight: 80.7 kg

DRUGS (4)
  1. CYANOCOALBUMIN [Concomitant]
     Dates: start: 20140625
  2. HYDROXYZINE PAMOATE. [Concomitant]
     Active Substance: HYDROXYZINE PAMOATE
     Dates: start: 20131015, end: 20181218
  3. ONDANSETRON [Suspect]
     Active Substance: ONDANSETRON
     Indication: NAUSEA
     Route: 048
     Dates: start: 20141024, end: 20181228
  4. OXYCODONE [Concomitant]
     Active Substance: OXYCODONE
     Dates: start: 20141017

REACTIONS (1)
  - Vomiting [None]

NARRATIVE: CASE EVENT DATE: 20181218
